FAERS Safety Report 6293753-1 (Version None)
Quarter: 2009Q3

REPORT INFORMATION
  Report Type: 
  Country: None (occurrence: None)
  Receive Date: 20090803
  Receipt Date: 20090722
  Transmission Date: 20100115
  Serious: Yes (Hospitalization)
  Sender: FDA-Public Use
  Company Number: FR-AMGEN-US357489

PATIENT
  Sex: Female

DRUGS (4)
  1. ENBREL [Suspect]
     Indication: RHEUMATOID ARTHRITIS
     Route: 058
     Dates: start: 20090111, end: 20090418
  2. METOJECT [Suspect]
     Indication: RHEUMATOID ARTHRITIS
     Dosage: UNKNOWN
     Route: 030
     Dates: start: 20080301
  3. CORTANCYL [Concomitant]
     Dosage: UNKNOWN
     Route: 048
     Dates: end: 20090501
  4. CORTANCYL [Concomitant]
     Dosage: UNKNOWN
     Route: 048

REACTIONS (10)
  - INJECTION SITE ERYTHEMA [None]
  - INJECTION SITE IRRITATION [None]
  - INJECTION SITE PRURITUS [None]
  - LIP BLISTER [None]
  - LIP ULCERATION [None]
  - PULMONARY EMBOLISM [None]
  - SKIN PLAQUE [None]
  - THROMBOPHLEBITIS [None]
  - VULVOVAGINAL ULCERATION [None]
  - WHITE BLOOD CELL COUNT INCREASED [None]
